FAERS Safety Report 6927856-2 (Version None)
Quarter: 2010Q3

REPORT INFORMATION
  Report Type: 
  Country: None (occurrence: None)
  Receive Date: 20100817
  Receipt Date: 20100806
  Transmission Date: 20110219
  Serious: Yes (Other)
  Sender: FDA-Public Use
  Company Number: US-PFIZER INC-2010100004

PATIENT
  Sex: Female
  Weight: 54.422 kg

DRUGS (5)
  1. GEODON [Suspect]
     Indication: BIPOLAR DISORDER
     Dosage: 150 MG, 1X/DAY
     Route: 048
     Dates: start: 20050101
  2. LAMICTAL [Concomitant]
     Dosage: 200 MG, 2X/DAY
  3. SERZONE [Concomitant]
     Dosage: 50 MG, 2X/DAY
  4. DEPAKOTE [Concomitant]
     Dosage: 500 MG, 2X/DAY
  5. SYNTHROID [Concomitant]
     Dosage: 50 UG, 1X/DAY

REACTIONS (1)
  - DYSKINESIA [None]
